FAERS Safety Report 18288956 (Version 1)
Quarter: 2020Q3

REPORT INFORMATION
  Report Type: Spontaneous
  Country: US (occurrence: US)
  Receive Date: 20200921
  Receipt Date: 20200921
  Transmission Date: 20201103
  Serious: No
  Sender: FDA-Public Use
  Company Number: US-PFIZER INC-2020359425

PATIENT
  Age: 43 Year
  Sex: Male
  Weight: 81.65 kg

DRUGS (2)
  1. TORADOL [Suspect]
     Active Substance: KETOROLAC TROMETHAMINE
     Dosage: UNK
  2. DETROL [Suspect]
     Active Substance: TOLTERODINE TARTRATE
     Dosage: UNK

REACTIONS (8)
  - Confusional state [Unknown]
  - Hypoacusis [Unknown]
  - Stress [Unknown]
  - Illness [Unknown]
  - Memory impairment [Unknown]
  - Cognitive disorder [Unknown]
  - Amnesia [Unknown]
  - Weight decreased [Unknown]
